FAERS Safety Report 21563256 (Version 1)
Quarter: 2022Q4

REPORT INFORMATION
  Report Type: Spontaneous
  Country: US (occurrence: US)
  Receive Date: 20221107
  Receipt Date: 20221107
  Transmission Date: 20230113
  Serious: No
  Sender: FDA-Public Use
  Company Number: US-SA-SAC20221103002315

PATIENT
  Weight: 73.481 kg

DRUGS (4)
  1. DUPIXENT [Suspect]
     Active Substance: DUPILUMAB
     Indication: Asthma
     Dosage: 300 MG QOW
     Route: 058
     Dates: start: 202207
  2. SHINGRIX [Concomitant]
     Active Substance: RECOMBINANT VARICELLA ZOSTER VIRUS (VZV) GLYCOPROTEIN E
  3. PNEUMOVAX 23 [Concomitant]
     Active Substance: PNEUMOCOCCAL VACCINE, POLYVALENT 23
     Indication: Immunisation
  4. MODERNA COVID-19 VACCINE [Concomitant]
     Active Substance: ELASOMERAN
     Indication: COVID-19 immunisation

REACTIONS (9)
  - Lip pain [Recovered/Resolved]
  - Paraesthesia oral [Recovered/Resolved]
  - Tongue discolouration [Unknown]
  - Staphylococcal infection [Unknown]
  - Lip discolouration [Not Recovered/Not Resolved]
  - Cyanosis [Unknown]
  - Glossodynia [Recovered/Resolved]
  - Nasal polypectomy [Unknown]
  - Therapeutic response shortened [Unknown]
